FAERS Safety Report 7316252-4 (Version None)
Quarter: 2011Q1

REPORT INFORMATION
  Report Type: 
  Country: None (occurrence: None)
  Receive Date: 20110225
  Receipt Date: 20110217
  Transmission Date: 20110831
  Serious: Yes (Other)
  Sender: FDA-Public Use
  Company Number: GB-ASTRAZENECA-2011SE09268

PATIENT
  Age: 8 Year
  Sex: Female
  Weight: 25.7 kg

DRUGS (7)
  1. PROPOFOL [Suspect]
     Indication: INDUCTION OF ANAESTHESIA
     Route: 042
     Dates: start: 20110117, end: 20110117
  2. PARACETAMOL [Suspect]
     Indication: PREMEDICATION
     Route: 048
     Dates: start: 20110117, end: 20110117
  3. SEVOFLURANE [Suspect]
     Indication: MAINTENANCE OF ANAESTHESIA
     Route: 055
     Dates: start: 20110117, end: 20110117
  4. IBUPROFEN [Suspect]
     Indication: PREMEDICATION
     Route: 048
     Dates: start: 20110117, end: 20110117
  5. NITROGENOXID [Suspect]
     Indication: MAINTENANCE OF ANAESTHESIA
     Route: 055
     Dates: start: 20110117, end: 20110117
  6. OXYGEN [Suspect]
     Indication: MAINTENANCE OF ANAESTHESIA
     Route: 055
     Dates: start: 20110117, end: 20110117
  7. EQUASYM [Concomitant]
     Indication: ATTENTION DEFICIT/HYPERACTIVITY DISORDER
     Route: 048

REACTIONS (2)
  - URTICARIA [None]
  - SWELLING FACE [None]
